FAERS Safety Report 10399332 (Version 1)
Quarter: 2014Q3

REPORT INFORMATION
  Report Type: Spontaneous
  Country: FR (occurrence: None)
  Receive Date: 20140819
  Receipt Date: 20140819
  Transmission Date: 20150326
  Serious: Yes (Hospitalization)
  Sender: FDA-Public Use
  Company Number: AUR-APL-2014-08854

PATIENT
  Age: 84 Year
  Sex: Male

DRUGS (21)
  1. PRIMPERAN (METOCLOPRAMIDE HYDROCHLORIDE) TABLET? [Concomitant]
  2. DISCOTRINE (GLYCERYL TRINITRATE) PATCH [Concomitant]
  3. PARACETAMOL ARROW (PARACETAMOL) POWDER [Concomitant]
  4. LOVENOX [Suspect]
     Active Substance: ENOXAPARIN SODIUM
     Indication: ATRIAL FIBRILLATION
     Dosage: 0.7 ML, TWO TIMES A DAY, SUBCUTANEOUS
     Route: 058
     Dates: start: 20140611, end: 20140614
  5. PREVISCAN [Suspect]
     Active Substance: FLUINDIONE
     Indication: ATRIAL FIBRILLATION
     Route: 048
     Dates: start: 20140610, end: 20140614
  6. APIDRA [Concomitant]
     Active Substance: INSULIN GLULISINE
  7. TRIMEBUTINE (TRIMEBUTINE) [Concomitant]
  8. LANSOPRAZOLE (LANSOPRAZOLE) ENTERIC COATED TABLET [Concomitant]
  9. CLOPIDOGREL [Suspect]
     Active Substance: CLOPIDOGREL BISULFATE
     Indication: ATRIAL FIBRILLATION
     Route: 048
     Dates: start: 20140610
  10. ATORVASTATINE /01326101/ (ATORVASTATIN) [Concomitant]
  11. GLICLAZIDE (GLICLAZIDE) [Concomitant]
     Active Substance: GLICLAZIDE
  12. IMOVANE (ZOPICLONE) FILM-COATED TABLET [Concomitant]
  13. VITAMIN K1 (PHYTOMENADIONE) SOLUTION [Concomitant]
  14. SERESTA (OXAZEPAM) [Concomitant]
     Active Substance: OXAZEPAM
  15. LASILIX /00032601/ (FUROSEMIDE) [Concomitant]
  16. VENLAFAXINE [Suspect]
     Active Substance: VENLAFAXINE HYDROCHLORIDE
     Indication: DEPRESSION
     Route: 048
     Dates: start: 20140612, end: 20140626
  17. MONTELUKAST SODIUM (MONTELUKAST SODIUM) [Concomitant]
     Active Substance: MONTELUKAST SODIUM
  18. RAMIPRIL (RAMIPRIL) [Concomitant]
     Active Substance: RAMIPRIL
  19. SPIRIVA [Concomitant]
     Active Substance: TIOTROPIUM BROMIDE MONOHYDRATE
  20. SYMBICORT [Concomitant]
     Active Substance: BUDESONIDE\FORMOTEROL FUMARATE DIHYDRATE
  21. DIFFU K (POTASSIUM CHLORIDE) CAPSULE [Concomitant]

REACTIONS (10)
  - Haematoma [None]
  - Atrial thrombosis [None]
  - Cardiac failure congestive [None]
  - Infection [None]
  - Wound [None]
  - Acute pulmonary oedema [None]
  - Haemorrhage [None]
  - International normalised ratio increased [None]
  - Haemoptysis [None]
  - Anaemia [None]

NARRATIVE: CASE EVENT DATE: 20140613
